APPROVED DRUG PRODUCT: IBUPROFEN AND DIPHENHYDRAMINE CITRATE
Active Ingredient: DIPHENHYDRAMINE CITRATE; IBUPROFEN
Strength: 38MG;200MG
Dosage Form/Route: TABLET;ORAL
Application: A090619 | Product #001
Applicant: DR REDDYS LABORATORIES LTD
Approved: Jul 8, 2009 | RLD: No | RS: No | Type: OTC